FAERS Safety Report 8928958 (Version 1)
Quarter: 2012Q4

REPORT INFORMATION
  Report Type: 
  Country: DK (occurrence: CN)
  Receive Date: 20121127
  Receipt Date: 20121127
  Transmission Date: 20130627
  Serious: Yes (Other)
  Sender: FDA-Public Use
  Company Number: CN-FRI-1000040641

PATIENT
  Age: 16 Year
  Sex: Male
  Weight: 80 kg

DRUGS (2)
  1. LEXAPRO [Suspect]
     Indication: DEPRESSION
     Dosage: 5 mg
     Route: 048
     Dates: start: 20120926, end: 20121016
  2. LEXAPRO [Suspect]
     Dosage: 10 mg
     Route: 048
     Dates: start: 20121016

REACTIONS (5)
  - Suicidal ideation [Unknown]
  - Hypokinesia [Unknown]
  - Hypersomnia [Unknown]
  - Weight increased [Unknown]
  - Off label use [Not Recovered/Not Resolved]
